FAERS Safety Report 9799807 (Version 2)
Quarter: 2014Q1

REPORT INFORMATION
  Report Type: Spontaneous
  Country: US (occurrence: US)
  Receive Date: 20140106
  Receipt Date: 20140106
  Transmission Date: 20141002
  Serious: No
  Sender: FDA-Public Use
  Company Number: US-GILEAD-2010-0031870

PATIENT
  Age: 72 Year
  Sex: Female
  Weight: 73.94 kg

DRUGS (11)
  1. LETAIRIS [Suspect]
     Indication: PULMONARY ARTERIAL HYPERTENSION
     Route: 048
     Dates: start: 20100405
  2. COUMADIN [Concomitant]
  3. CARDIZEM [Concomitant]
  4. LASIX [Concomitant]
  5. ADVAIR [Concomitant]
  6. SPIRIVA [Concomitant]
  7. XOPENEX [Concomitant]
  8. PREDNISOLONE [Concomitant]
  9. ZITHROMAX [Concomitant]
  10. POTASSIUM CHLORIDE [Concomitant]
  11. CENTRUM CALCIUM [Concomitant]

REACTIONS (2)
  - Syncope [Unknown]
  - Hearing impaired [Unknown]
